FAERS Safety Report 8620921-3 (Version None)
Quarter: 2012Q3

REPORT INFORMATION
  Report Type: 
  Country: None (occurrence: None)
  Receive Date: 20120824
  Receipt Date: 20120820
  Transmission Date: 20120928
  Serious: Yes (Other)
  Sender: FDA-Public Use
  Company Number: US-PFIZER INC-2012044883

PATIENT
  Age: 52 Year
  Sex: Female
  Weight: 54.422 kg

DRUGS (3)
  1. LEVOXYL [Suspect]
     Indication: AUTOIMMUNE THYROIDITIS
     Dosage: 100 UG, 1X/DAY
     Route: 048
     Dates: end: 20120201
  2. LEVOXYL [Suspect]
     Dosage: 0.05 MG, ONE DAILY, 4 WEEKS
     Route: 048
     Dates: start: 20120531, end: 20120627
  3. LEVOXYL [Suspect]
     Dosage: 100 UG, 1X/DAY
     Route: 048
     Dates: start: 20120217

REACTIONS (13)
  - GAIT DISTURBANCE [None]
  - ACTIVITIES OF DAILY LIVING IMPAIRED [None]
  - MYALGIA [None]
  - COORDINATION ABNORMAL [None]
  - HYPOAESTHESIA [None]
  - MUSCLE RIGIDITY [None]
  - HYPOKINESIA [None]
  - MUSCLE SPASMS [None]
  - MOVEMENT DISORDER [None]
  - DYSGRAPHIA [None]
  - MOTOR DYSFUNCTION [None]
  - ARTHRALGIA [None]
  - INSOMNIA [None]
